FAERS Safety Report 8837254 (Version 3)
Quarter: 2012Q4

REPORT INFORMATION
  Report Type: 
  Country: CA (occurrence: CA)
  Receive Date: 20121012
  Receipt Date: 20121207
  Transmission Date: 20130627
  Serious: Yes (Hospitalization, Other)
  Sender: FDA-Public Use
  Company Number: CA-JNJFOC-20121003271

PATIENT
  Age: 33 Year
  Sex: Male
  Weight: 92.5 kg

DRUGS (11)
  1. PREZISTA [Suspect]
     Indication: HIV INFECTION
     Route: 048
     Dates: start: 20121001, end: 20121001
  2. PREZISTA [Suspect]
     Indication: HIV INFECTION
     Route: 048
     Dates: start: 20100603, end: 20120930
  3. KIVEXA [Suspect]
     Indication: ANTIRETROVIRAL THERAPY
     Route: 048
     Dates: start: 20121001, end: 20121001
  4. KIVEXA [Suspect]
     Indication: ANTIRETROVIRAL THERAPY
     Route: 048
     Dates: start: 20100916, end: 20120930
  5. NORVIR [Suspect]
     Indication: ANTIRETROVIRAL THERAPY
     Route: 048
     Dates: start: 20121001, end: 20121001
  6. VENTOLIN [Concomitant]
     Dosage: 2 puffs
     Route: 055
  7. SYMBICORT [Concomitant]
     Dosage: 2 puffs
     Route: 055
  8. CIPRALEX [Concomitant]
     Route: 065
  9. VIAGRA [Concomitant]
     Route: 065
  10. WELLBUTRIN XL [Concomitant]
     Route: 065
  11. ACYCLOVIR [Concomitant]
     Route: 065

REACTIONS (5)
  - Suicide attempt [Unknown]
  - Intentional overdose [Recovered/Resolved]
  - Nausea [Recovered/Resolved]
  - Vomiting [Recovered/Resolved]
  - Hepatic enzyme increased [Recovering/Resolving]
